FAERS Safety Report 14510949 (Version 10)
Quarter: 2023Q2

REPORT INFORMATION
  Report Type: Report from Study
  Country: US (occurrence: US)
  Receive Date: 20180209
  Receipt Date: 20230518
  Transmission Date: 20230721
  Serious: Yes (Hospitalization, Other)
  Sender: FDA-Public Use
  Company Number: US-JAZZ-2018-US-002076

PATIENT
  Sex: Female

DRUGS (35)
  1. XYREM [Suspect]
     Active Substance: SODIUM OXYBATE
     Indication: Insomnia
     Dosage: 2 G, BID
     Route: 048
     Dates: start: 201801, end: 201801
  2. XYREM [Suspect]
     Active Substance: SODIUM OXYBATE
     Indication: Hypersomnia
     Dosage: 4.5 G, BID
     Route: 048
     Dates: start: 20180129, end: 20180129
  3. XYREM [Suspect]
     Active Substance: SODIUM OXYBATE
     Indication: Narcolepsy
  4. XYREM [Suspect]
     Active Substance: SODIUM OXYBATE
     Indication: Cataplexy
  5. XYREM [Suspect]
     Active Substance: SODIUM OXYBATE
     Indication: Somnolence
  6. CANRENOATE POTASSIUM [Concomitant]
     Active Substance: CANRENOATE POTASSIUM
  7. FUROSEMIDE SODIUM [Concomitant]
     Active Substance: FUROSEMIDE SODIUM
  8. LEVOTHYROXINE [Concomitant]
     Active Substance: LEVOTHYROXINE
     Dosage: UNK
     Dates: start: 20220620
  9. CALCIUM CARBONATE [Concomitant]
     Active Substance: CALCIUM CARBONATE
  10. VITAMIN D3 [Concomitant]
     Active Substance: CHOLECALCIFEROL
  11. ACEBUTOLOL [Concomitant]
     Active Substance: ACEBUTOLOL
  12. SEROQUEL [Concomitant]
     Active Substance: QUETIAPINE FUMARATE
  13. CLONAZEPAM [Concomitant]
     Active Substance: CLONAZEPAM
  14. AMBIEN CR [Concomitant]
     Active Substance: ZOLPIDEM TARTRATE
  15. MAGNESIUM CITRAT [Concomitant]
  16. AMBIEN [Concomitant]
     Active Substance: ZOLPIDEM TARTRATE
  17. BELSOMRA [Concomitant]
     Active Substance: SUVOREXANT
  18. CYCLOBENZAPRINE [Concomitant]
     Active Substance: CYCLOBENZAPRINE
  19. CYTOMEL [Concomitant]
     Active Substance: LIOTHYRONINE SODIUM
  20. TAMSULOSIN HYDROCHLORIDE [Concomitant]
     Active Substance: TAMSULOSIN HYDROCHLORIDE
  21. HYDROCODONE BITARTRATE AND ACETAMINOPHEN [Concomitant]
     Active Substance: ACETAMINOPHEN\HYDROCODONE BITARTRATE
  22. MAXALT [Concomitant]
     Active Substance: RIZATRIPTAN BENZOATE
  23. METOPROLOL SUCCINATE [Concomitant]
     Active Substance: METOPROLOL SUCCINATE
  24. ONDANSETRON HYDROCHLORIDE [Concomitant]
     Active Substance: ONDANSETRON HYDROCHLORIDE
  25. ALDACTONE [Concomitant]
     Active Substance: SPIRONOLACTONE
  26. CORLANOR [Concomitant]
     Active Substance: IVABRADINE HYDROCHLORIDE
     Indication: Product used for unknown indication
     Dosage: 0000
     Dates: start: 20211201
  27. CLAVULANATE POTASSIUM [Concomitant]
     Active Substance: CLAVULANATE POTASSIUM
     Indication: Product used for unknown indication
     Dosage: 20 MEQ ER TABLET
     Dates: start: 20210901
  28. ZYRTEC [Concomitant]
     Active Substance: CETIRIZINE HYDROCHLORIDE
     Indication: Product used for unknown indication
     Dosage: 0000
     Dates: start: 20220220
  29. XOPENEX [Concomitant]
     Active Substance: LEVALBUTEROL HYDROCHLORIDE
     Indication: Product used for unknown indication
     Dosage: 1.25 MG/0.5 ML
     Dates: start: 20190228
  30. SYMBICORT [Concomitant]
     Active Substance: BUDESONIDE\FORMOTEROL FUMARATE DIHYDRATE
     Indication: Product used for unknown indication
     Dosage: 160-4.5 MCG INHALER
     Dates: start: 20210228
  31. ALBUTEROL SULFATE [Concomitant]
     Active Substance: ALBUTEROL SULFATE
     Indication: Product used for unknown indication
     Dosage: 90 MCG INHALER
     Dates: start: 20190228
  32. MELATONIN [Concomitant]
     Active Substance: MELATONIN
     Indication: Product used for unknown indication
     Dosage: 0000
     Dates: start: 20200228
  33. DIETARY SUPPLEMENT [Concomitant]
     Active Substance: DIETARY SUPPLEMENT
     Indication: Product used for unknown indication
     Dosage: 0000
     Dates: start: 20190228
  34. PROBIOTICS NOS [Concomitant]
     Active Substance: PROBIOTICS NOS
     Indication: Product used for unknown indication
     Dosage: 0000
     Dates: start: 20170228
  35. LIOTHYRONINE SODIUM [Concomitant]
     Active Substance: LIOTHYRONINE SODIUM
     Indication: Product used for unknown indication
     Dosage: 0000
     Dates: start: 20220620

REACTIONS (13)
  - Sinus tachycardia [Unknown]
  - Choking [Not Recovered/Not Resolved]
  - Hospitalisation [Recovered/Resolved]
  - Weight increased [Unknown]
  - Pyrexia [Not Recovered/Not Resolved]
  - Asthma [Not Recovered/Not Resolved]
  - Illness [Unknown]
  - Oedema [Unknown]
  - Hypertension [Recovered/Resolved]
  - Headache [Unknown]
  - Vomiting [Unknown]
  - Retching [Unknown]
  - Off label use [Unknown]

NARRATIVE: CASE EVENT DATE: 20000101
